FAERS Safety Report 15508473 (Version 1)
Quarter: 2018Q4

REPORT INFORMATION
  Report Type: Spontaneous
  Country: US (occurrence: US)
  Receive Date: 20181016
  Receipt Date: 20181016
  Transmission Date: 20190205
  Serious: Yes (Death, Other)
  Sender: FDA-Public Use
  Company Number: US-ARBOR PHARMACEUTICALS, LLC-US-2018ARB001027

PATIENT
  Age: 12 Year
  Sex: Female

DRUGS (2)
  1. GABAPENTIN ENACARBIL [Suspect]
     Active Substance: GABAPENTIN ENACARBIL
     Indication: PRODUCT USED FOR UNKNOWN INDICATION
     Dosage: UNK
  2. DIAZEPAM. [Suspect]
     Active Substance: DIAZEPAM
     Indication: PRODUCT USED FOR UNKNOWN INDICATION
     Dosage: UNK

REACTIONS (10)
  - Hyperthermia [Unknown]
  - Metabolic acidosis [Unknown]
  - Anion gap [Unknown]
  - Coma [Unknown]
  - Hypotension [Unknown]
  - Bradypnoea [Unknown]
  - Toxicity to various agents [Fatal]
  - Tachycardia [Unknown]
  - Depressed level of consciousness [Unknown]
  - Respiratory depression [Unknown]

NARRATIVE: CASE EVENT DATE: 2017
